FAERS Safety Report 22635543 (Version 1)
Quarter: 2023Q2

REPORT INFORMATION
  Report Type: Report from Study
  Country: DE (occurrence: DE)
  Receive Date: 20230623
  Receipt Date: 20230623
  Transmission Date: 20230721
  Serious: Yes (Hospitalization, Other)
  Sender: FDA-Public Use
  Company Number: DE-SEATTLE GENETICS-2023SGN05177

PATIENT
  Age: 44 Year
  Sex: Female
  Weight: 111 kg

DRUGS (12)
  1. TRASTUZUMAB [Suspect]
     Active Substance: TRASTUZUMAB
     Indication: Breast cancer
     Dosage: 6 MILLIGRAM/KILOGRAM, Q3W
     Route: 042
     Dates: start: 20230322
  2. CAPECITABINE [Suspect]
     Active Substance: CAPECITABINE
     Indication: Breast cancer
     Dosage: 200 MILLIGRAM
     Route: 048
     Dates: start: 20230404
  3. TUCATINIB [Suspect]
     Active Substance: TUCATINIB
     Indication: Breast cancer
     Dosage: 300 MG, (2X2 150 MG) QD
     Route: 048
     Dates: start: 20230404, end: 20230525
  4. DEXAMETHASONE [Concomitant]
     Active Substance: DEXAMETHASONE
     Indication: Prophylaxis
     Dosage: 8 MILLIGRAM, QD (4 MG, BID)
     Route: 048
     Dates: start: 20230222
  5. PANTOPRAZOLE SODIUM [Concomitant]
     Active Substance: PANTOPRAZOLE SODIUM
     Indication: Prophylaxis
     Dosage: 40 MILLIGRAM, QD (40 MG, QD
     Route: 048
     Dates: start: 20040301
  6. PREGABALIN [Concomitant]
     Active Substance: PREGABALIN
     Indication: Prophylaxis
     Dosage: 100 MILLIGRAM, QD (25 MG, QID)
     Route: 048
     Dates: start: 20180701
  7. ALLOPURINOL [Concomitant]
     Active Substance: ALLOPURINOL
     Indication: Prophylaxis
     Dosage: 300 MILLIGRAM, QD
     Route: 048
     Dates: start: 20210201
  8. SERTRALINE HYDROCHLORIDE [Concomitant]
     Active Substance: SERTRALINE HYDROCHLORIDE
     Indication: Prophylaxis
     Dosage: 100 MILLIGRAM, QD (50 MG, BID)
     Route: 048
     Dates: start: 20140101
  9. METOPROLOL [Concomitant]
     Active Substance: METOPROLOL
     Indication: Prophylaxis
     Dosage: 47.5 MILLIGRAM, QD (47.5 MG, QD)
     Route: 048
     Dates: start: 20170101
  10. MIRTAZAPINE [Concomitant]
     Active Substance: MIRTAZAPINE
     Indication: Prophylaxis
     Dosage: 15 MILLIGRAM, QD (15 MG, QD)
     Route: 048
     Dates: start: 20180701
  11. NALOXONE HYDROCHLORIDE\TILIDINE HYDROCHLORIDE [Concomitant]
     Active Substance: NALOXONE HYDROCHLORIDE\TILIDINE HYDROCHLORIDE
     Indication: Prophylaxis
     Dosage: 50 MILLIGRAM, QD (50 MG, QD)
     Route: 048
     Dates: start: 20210801
  12. Erypo [Concomitant]
     Dosage: UNK
     Route: 065
     Dates: start: 20230525

REACTIONS (1)
  - Sepsis [Recovering/Resolving]

NARRATIVE: CASE EVENT DATE: 20230525
